FAERS Safety Report 18357759 (Version 1)
Quarter: 2020Q4

REPORT INFORMATION
  Report Type: Spontaneous
  Country: PT (occurrence: PT)
  Receive Date: 20201007
  Receipt Date: 20201007
  Transmission Date: 20210114
  Serious: Yes (Hospitalization, Other)
  Sender: FDA-Public Use
  Company Number: PT-GALDERMA-PT2020044749

PATIENT
  Age: 86 Year
  Sex: Male

DRUGS (2)
  1. DOXYCYCLINE. [Suspect]
     Active Substance: DOXYCYCLINE
     Indication: BOUTONNEUSE FEVER
     Route: 065
  2. AMOXICILLIN/CLAVULANIC ACID [Concomitant]
     Active Substance: AMOXICILLIN\CLAVULANIC ACID
     Indication: BOUTONNEUSE FEVER
     Route: 065

REACTIONS (6)
  - Respiratory failure [Unknown]
  - Septic shock [Unknown]
  - Ischaemia [Unknown]
  - Intentional product use issue [Recovered/Resolved]
  - Renal impairment [Unknown]
  - Thrombocytopenia [Unknown]
